FAERS Safety Report 7746747-0 (Version None)
Quarter: 2011Q3

REPORT INFORMATION
  Report Type: 
  Country: None (occurrence: None)
  Receive Date: 20110908
  Receipt Date: 20110826
  Transmission Date: 20111222
  Serious: Yes (Hospitalization, Other)
  Sender: FDA-Public Use
  Company Number: JPI-P-016039

PATIENT
  Age: 52 Year
  Sex: Female

DRUGS (11)
  1. CYCLOBENZAPRINE HYDROCHLORIDE [Concomitant]
  2. VENLAFAXINE HYDROCHLORIDE [Concomitant]
  3. XYREM [Suspect]
     Indication: INSOMNIA
     Dosage: 2 IN 1 D), ORAL (5 GM FIRST DOSE/2 GM SECOND DOSE), ORAL
     Route: 048
     Dates: start: 20040511
  4. XYREM [Suspect]
     Indication: SLEEP APNOEA SYNDROME
     Dosage: 2 IN 1 D), ORAL (5 GM FIRST DOSE/2 GM SECOND DOSE), ORAL
     Route: 048
     Dates: start: 20040511
  5. POLYETHYLENE GLYCOL [Concomitant]
  6. SIMVASTATIN [Concomitant]
  7. LISINOPRIL [Concomitant]
  8. MELOXICAM [Concomitant]
  9. METFORMIN HCL [Concomitant]
  10. ESOMEPRAZOLE MAGNESIUM [Concomitant]
  11. CALCIUM SOFT CHEW [Concomitant]

REACTIONS (4)
  - INTERVERTEBRAL DISC DISORDER [None]
  - BLADDER DYSFUNCTION [None]
  - FUNCTIONAL GASTROINTESTINAL DISORDER [None]
  - NERVE COMPRESSION [None]
